FAERS Safety Report 21293811 (Version 1)
Quarter: 2022Q3

REPORT INFORMATION
  Report Type: Spontaneous
  Country: US (occurrence: US)
  Receive Date: 20220905
  Receipt Date: 20220905
  Transmission Date: 20221027
  Serious: No
  Sender: FDA-Public Use
  Company Number: US-PFIZER INC-202101443934

PATIENT
  Age: 65 Year
  Sex: Male
  Weight: 104.33 kg

DRUGS (2)
  1. RAPAMUNE [Suspect]
     Active Substance: SIROLIMUS
     Indication: Renal transplant
     Dosage: 1 MG, 1X/DAY
     Dates: start: 201904
  2. RAPAMUNE [Suspect]
     Active Substance: SIROLIMUS
     Dosage: 4 DF, DAILY (TAKE 4 TABLETS DAILY)
     Dates: end: 20211210

REACTIONS (2)
  - Body height decreased [Unknown]
  - Visual impairment [Unknown]
